FAERS Safety Report 6913667-0 (Version None)
Quarter: 2010Q3

REPORT INFORMATION
  Report Type: 
  Country: None (occurrence: None)
  Receive Date: 20100809
  Receipt Date: 20100730
  Transmission Date: 20110219
  Serious: Yes (Hospitalization, Other)
  Sender: FDA-Public Use
  Company Number: US-JNJFOC-20100603493

PATIENT
  Sex: Female
  Weight: 104.33 kg

DRUGS (12)
  1. TOPAMAX [Suspect]
     Indication: HEADACHE
     Route: 048
  2. TOPAMAX [Suspect]
     Route: 048
  3. TOPAMAX [Suspect]
     Indication: MIGRAINE PROPHYLAXIS
     Route: 048
  4. TOPAMAX [Suspect]
     Route: 048
  5. DARVOCET [Suspect]
     Indication: HEADACHE
     Dosage: 100/650MG
     Route: 048
  6. DARVOCET [Suspect]
     Indication: MIGRAINE
     Dosage: 100/650MG
     Route: 048
  7. ATENOLOL [Concomitant]
     Indication: HYPERTENSION
     Route: 048
  8. NORVASC [Concomitant]
     Indication: HYPERTENSION
     Route: 048
  9. ALLOPURINOL [Concomitant]
     Indication: HYPERTENSION
     Route: 048
  10. NORTRIPTYLINE [Concomitant]
     Indication: ANXIETY
     Route: 048
  11. MIRTAZAPINE [Concomitant]
     Indication: ANXIETY
     Route: 048
  12. ASPIRIN [Concomitant]
     Indication: HYPERTENSION
     Route: 048

REACTIONS (5)
  - ABASIA [None]
  - AMNESIA [None]
  - GOUT [None]
  - LOSS OF CONSCIOUSNESS [None]
  - SYNCOPE [None]
